FAERS Safety Report 4888012-5 (Version None)
Quarter: 2006Q1

REPORT INFORMATION
  Report Type: 
  Country: None (occurrence: None)
  Receive Date: 20060123
  Receipt Date: 20051005
  Transmission Date: 20060701
  Serious: Yes (Other)
  Sender: FDA-Public Use
  Company Number: US-MERCK-0510USA04077

PATIENT
  Age: 39 Year
  Sex: Male
  Weight: 97 kg

DRUGS (23)
  1. VIOXX [Suspect]
     Indication: ARTHRITIS
     Route: 048
     Dates: start: 20010101, end: 20040329
  2. VIOXX [Suspect]
     Route: 048
     Dates: start: 20010101, end: 20040329
  3. VIOXX [Suspect]
     Indication: ARTHRALGIA
     Route: 048
     Dates: start: 20010101, end: 20040329
  4. VIOXX [Suspect]
     Route: 048
     Dates: start: 20010101, end: 20040329
  5. ZOCOR [Concomitant]
     Route: 065
  6. ASPIRIN [Concomitant]
     Route: 065
  7. HYDROCODONE BITARTRATE [Concomitant]
     Route: 065
  8. TENOX (TEMAZEPAM) [Concomitant]
     Route: 065
  9. METOPROLOL [Concomitant]
     Route: 065
  10. FUROSEMIDE [Concomitant]
     Route: 065
  11. PROMETHAZINE [Concomitant]
     Route: 065
  12. PAXIL [Concomitant]
     Route: 065
  13. CAPTOPRIL MSD [Concomitant]
     Route: 065
  14. INDERAL [Concomitant]
     Route: 065
  15. AMOXIL [Concomitant]
     Route: 065
  16. NORVASC [Concomitant]
     Route: 065
  17. OXYCODONE [Concomitant]
     Route: 065
  18. PROTONIX [Concomitant]
     Route: 065
  19. CEPHALEXIN [Concomitant]
     Route: 065
  20. ALBUTEROL [Concomitant]
     Route: 065
  21. LORAZEPAM [Concomitant]
     Route: 065
  22. ALLEGRA [Concomitant]
     Route: 065
  23. TEQUIN [Concomitant]
     Route: 065

REACTIONS (1)
  - MYOCARDIAL INFARCTION [None]
